FAERS Safety Report 13748082 (Version 1)
Quarter: 2017Q3

REPORT INFORMATION
  Report Type: Report from Study
  Country: US (occurrence: US)
  Receive Date: 20170713
  Receipt Date: 20170713
  Transmission Date: 20171127
  Serious: Yes (Hospitalization, Other)
  Sender: FDA-Public Use
  Company Number: US-AMGEN-USASL2017103018

PATIENT
  Age: 65 Year
  Sex: Female

DRUGS (1)
  1. ENBREL [Suspect]
     Active Substance: ETANERCEPT
     Indication: RHEUMATOID ARTHRITIS
     Dosage: 50 MG, QWK
     Route: 065
     Dates: end: 201702

REACTIONS (7)
  - Renal failure [Recovering/Resolving]
  - Cervix neoplasm [Unknown]
  - Dehydration [Unknown]
  - Bladder mass [Unknown]
  - Uterine mass [Unknown]
  - Weight decreased [Unknown]
  - Ureteral neoplasm [Unknown]

NARRATIVE: CASE EVENT DATE: 201702
